FAERS Safety Report 6282226-8 (Version None)
Quarter: 2009Q3

REPORT INFORMATION
  Report Type: 
  Country: None (occurrence: None)
  Receive Date: 20090724
  Receipt Date: 20090715
  Transmission Date: 20100115
  Serious: Yes (Other)
  Sender: FDA-Public Use
  Company Number: DE-JNJFOC-20090704539

PATIENT
  Age: 30 Year
  Weight: 57 kg

DRUGS (6)
  1. REMICADE [Suspect]
     Dosage: RECEIVED A TOTAL OF 1.5 INFUSIONS
     Route: 042
  2. REMICADE [Suspect]
     Indication: COLITIS ULCERATIVE
     Route: 042
  3. AZATHIOPRINE [Concomitant]
     Indication: COLITIS ULCERATIVE
  4. DECORTIN [Concomitant]
     Indication: COLITIS ULCERATIVE
  5. CLAVERSAL [Concomitant]
     Indication: COLITIS ULCERATIVE
  6. SOLU-DECORTIN [Concomitant]
     Indication: PREMEDICATION
     Route: 042

REACTIONS (4)
  - DYSPNOEA [None]
  - FACE OEDEMA [None]
  - INFUSION RELATED REACTION [None]
  - PALPITATIONS [None]
